FAERS Safety Report 11885710 (Version 1)
Quarter: 2016Q1

REPORT INFORMATION
  Report Type: Spontaneous
  Country: US (occurrence: US)
  Receive Date: 20160104
  Receipt Date: 20160104
  Transmission Date: 20160526
  Serious: No
  Sender: FDA-Public Use
  Company Number: US-APOTEX-2015AP014400

PATIENT

DRUGS (1)
  1. FENTANYL TRANSDERMAL SYSTEM [Suspect]
     Active Substance: FENTANYL
     Indication: ANALGESIC THERAPY
     Dosage: 1 PATCH VERY 72 HOURS
     Route: 062

REACTIONS (5)
  - Nausea [Unknown]
  - Product substitution issue [Unknown]
  - Drug effect delayed [Unknown]
  - Drug effect incomplete [Unknown]
  - Drug withdrawal syndrome [Unknown]
